FAERS Safety Report 13996345 (Version 2)
Quarter: 2017Q4

REPORT INFORMATION
  Report Type: Spontaneous
  Country: US (occurrence: US)
  Receive Date: 20170921
  Receipt Date: 20171113
  Transmission Date: 20180321
  Serious: No
  Sender: FDA-Public Use
  Company Number: US-TEVA-807002ACC

PATIENT
  Age: 37 Year
  Sex: Female

DRUGS (1)
  1. PARAGARD T 380A [Suspect]
     Active Substance: COPPER
     Dosage: 7-8 YEARS AGO
     Dates: end: 201708

REACTIONS (1)
  - Device breakage [Recovered/Resolved]

NARRATIVE: CASE EVENT DATE: 20170824
